FAERS Safety Report 4515586-6 (Version None)
Quarter: 2004Q3

REPORT INFORMATION
  Report Type: 
  Country: None (occurrence: None)
  Receive Date: 20040930
  Receipt Date: 20040528
  Transmission Date: 20050211
  Serious: Yes (Other)
  Sender: FDA-Public Use
  Company Number: US-JNJFOC-20040600571

PATIENT
  Age: 60 Year
  Sex: Female
  Weight: 68.0396 kg

DRUGS (4)
  1. DITROPAN XL [Suspect]
     Indication: POLLAKIURIA
     Dosage: ORAL
     Route: 048
     Dates: start: 20040527
  2. NEURONTIN [Concomitant]
  3. PHENOBARBITAL TAB [Concomitant]
  4. DILANTIN [Concomitant]

REACTIONS (1)
  - CONVULSION [None]
